FAERS Safety Report 8792508 (Version 2)
Quarter: 2013Q4

REPORT INFORMATION
  Report Type: Spontaneous
  Country: US (occurrence: US)
  Receive Date: 20120918
  Receipt Date: 20131031
  Transmission Date: 20140711
  Serious: Yes (Life-Threatening, Hospitalization, Other)
  Sender: FDA-Public Use
  Company Number: US-009507513-1209USA006057

PATIENT
  Age: 54 Year
  Sex: Female

DRUGS (10)
  1. SAPHRIS [Suspect]
     Route: 060
  2. DOCUSATE SODIUM [Concomitant]
  3. HYDROXYZINE [Concomitant]
  4. LEVETIRACETAM [Concomitant]
  5. PANTOPRAZOLE [Concomitant]
  6. ASCORBIC ACID [Concomitant]
  7. OLANZAPINE [Concomitant]
  8. TRAZODONE HYDROCHLORIDE [Concomitant]
  9. LORAZEPAM [Concomitant]
  10. LAMOTRIGINE [Concomitant]

REACTIONS (9)
  - Renal failure acute [Unknown]
  - Polydipsia psychogenic [Unknown]
  - Hyponatraemia [Unknown]
  - Cardiac arrest [Unknown]
  - Multi-organ failure [Unknown]
  - Bradycardia [Unknown]
  - Pneumonia aspiration [Unknown]
  - Acid base balance abnormal [Unknown]
  - Arrhythmia [Unknown]
